FAERS Safety Report 9220336 (Version 1)
Quarter: 2013Q1

REPORT INFORMATION
  Report Type: Spontaneous
  Country: US (occurrence: None)
  Receive Date: 20120831
  Receipt Date: 20120831
  Transmission Date: 20140127
  Serious: No
  Sender: FDA-Public Use
  Company Number: 1000030830

PATIENT
  Age: 78 Year
  Sex: Male

DRUGS (9)
  1. DALIRESP [Suspect]
     Indication: CHRONIC OBSTRUCTIVE PULMONARY DISEASE
     Dosage: 1 IN 1
     Route: 048
     Dates: start: 201205
  2. ZOCOR(SIMVASTATIN)(SIMVASTATIN) [Concomitant]
  3. COREG (CARVEDILOL)(CARVEDILOL) [Concomitant]
  4. ALDACTONE (SPIRONOLACTONE)(SPIRONOLACTONE) [Concomitant]
  5. NEXIUM(ESOMEPRAZOLE)(ESOMEPRAZOLE) [Concomitant]
  6. SYMBICORT (BUDESONIDE, FORMOTEROL)(BUDESONIDE, FORMOTEROL) [Concomitant]
  7. COMBIVENT(IPRATROPIUM, ALBUTEROL)(IPRATROPIUM, ALBUTEROL) [Concomitant]
  8. SPIRIVA (TIOTROPIUM BROMIDE) (TIOTROPIUM BROMIDE) [Concomitant]
  9. RESTORIL (TEMAZEPAM) (TEMAZEPAM) [Concomitant]

REACTIONS (1)
  - Abnormal dreams [None]
